FAERS Safety Report 9530076 (Version 3)
Quarter: 2013Q4

REPORT INFORMATION
  Report Type: Report from Study
  Country: JP (occurrence: JP)
  Receive Date: 20130917
  Receipt Date: 20131014
  Transmission Date: 20140711
  Serious: Yes (Death, Life-Threatening, Hospitalization, Other)
  Sender: FDA-Public Use
  Company Number: JP-TEVA-2011004301

PATIENT
  Age: 65 Year
  Sex: Female
  Weight: 52 kg

DRUGS (11)
  1. BENDAMUSTINE HCL [Suspect]
     Indication: B-CELL LYMPHOMA
     Dosage: 120 MG/M2 DAILY;
     Route: 042
     Dates: start: 20110128, end: 20110129
  2. BENDAMUSTINE HCL [Suspect]
     Dosage: 120 MG/M2 DAILY;
     Route: 042
     Dates: start: 20110302, end: 20110303
  3. BENDAMUSTINE HCL [Suspect]
     Dosage: 120 MG/M2 DAILY;
     Route: 042
     Dates: start: 20110411, end: 20110412
  4. BENDAMUSTINE HCL [Suspect]
     Dosage: 120 MG/M2 DAILY;
     Route: 042
     Dates: start: 20110509, end: 20110510
  5. BENDAMUSTINE HCL [Suspect]
     Dosage: 120 MG/M2 DAILY;
     Route: 042
     Dates: start: 20110608, end: 20110609
  6. ALLOPURINOL [Suspect]
     Indication: PROPHYLAXIS
     Route: 048
     Dates: end: 20110210
  7. SULFAMETHOXAZOLE W/TRIMETHOPRIM [Suspect]
     Indication: PROPHYLAXIS
     Route: 048
     Dates: end: 20110210
  8. PREDNISONE [Concomitant]
     Dates: start: 20110308, end: 20110614
  9. ACICLOVIR [Concomitant]
     Dates: start: 20110125, end: 20110714
  10. ACETAMINOPHEN [Concomitant]
     Dates: start: 20110620, end: 20110709
  11. POTASSIUM CITRATE [Concomitant]
     Dates: start: 20110708, end: 20110714

REACTIONS (10)
  - Acute lymphocytic leukaemia [Fatal]
  - Sepsis [Fatal]
  - Disseminated intravascular coagulation [Fatal]
  - Neutropenia [Recovered/Resolved]
  - Lymphocyte count decreased [Not Recovered/Not Resolved]
  - Rash [Recovered/Resolved]
  - Thrombocytopenia [Recovering/Resolving]
  - Red blood cell count decreased [Unknown]
  - Haemoglobin decreased [Unknown]
  - Haematocrit decreased [Unknown]
